FAERS Safety Report 16660683 (Version 1)
Quarter: 2019Q3

REPORT INFORMATION
  Report Type: Spontaneous
  Country: US (occurrence: US)
  Receive Date: 20190802
  Receipt Date: 20190802
  Transmission Date: 20191004
  Serious: Yes (Other)
  Sender: FDA-Public Use
  Company Number: US-BAYER-2019-139857

PATIENT
  Age: 21 Year
  Sex: Male
  Weight: 86 kg

DRUGS (1)
  1. AFRIN NO DRIP SEVERE CONGESTION [Suspect]
     Active Substance: OXYMETAZOLINE HYDROCHLORIDE
     Dosage: UNK
     Route: 055
     Dates: start: 2014

REACTIONS (3)
  - Inappropriate schedule of product administration [Unknown]
  - Incorrect dosage administered [Unknown]
  - Drug dependence [Unknown]

NARRATIVE: CASE EVENT DATE: 2014
